FAERS Safety Report 6908516-0 (Version None)
Quarter: 2010Q3

REPORT INFORMATION
  Report Type: 
  Country: None (occurrence: None)
  Receive Date: 20100805
  Receipt Date: 20100728
  Transmission Date: 20110219
  Serious: Yes (Hospitalization, Other)
  Sender: FDA-Public Use
  Company Number: US-JNJFOC-20100402989

PATIENT
  Sex: Male
  Weight: 67.13 kg

DRUGS (2)
  1. LEVAQUIN [Suspect]
     Indication: INFECTION
     Route: 048
  2. LEVAQUIN [Suspect]
     Route: 042

REACTIONS (2)
  - JOINT INJURY [None]
  - ROTATOR CUFF SYNDROME [None]
